FAERS Safety Report 23061053 (Version 5)
Quarter: 2024Q1

REPORT INFORMATION
  Report Type: Spontaneous
  Country: US (occurrence: US)
  Receive Date: 20231013
  Receipt Date: 20240227
  Transmission Date: 20240409
  Serious: No
  Sender: FDA-Public Use
  Company Number: US-BRISTOL-MYERS SQUIBB COMPANY-2023-145667

PATIENT
  Age: 62 Year
  Sex: Female
  Weight: 81.19 kg

DRUGS (1)
  1. REVLIMID [Suspect]
     Active Substance: LENALIDOMIDE
     Indication: Myelodysplastic syndrome
     Dosage: FREQUENCY-ONCE DAILY
     Route: 048
     Dates: start: 20230916

REACTIONS (12)
  - Nausea [Recovering/Resolving]
  - Back pain [Recovering/Resolving]
  - Paraesthesia [Recovering/Resolving]
  - Hypoaesthesia oral [Unknown]
  - Hypoaesthesia [Unknown]
  - White blood cell count decreased [Unknown]
  - Abdominal pain upper [Unknown]
  - Dry skin [Unknown]
  - Influenza [Recovering/Resolving]
  - Abdominal discomfort [Unknown]
  - Diarrhoea [Unknown]
  - Chest pain [Unknown]
